FAERS Safety Report 14919003 (Version 1)
Quarter: 2018Q2

REPORT INFORMATION
  Report Type: Spontaneous
  Country: AU (occurrence: AU)
  Receive Date: 20180521
  Receipt Date: 20180521
  Transmission Date: 20180711
  Serious: Yes (Hospitalization)
  Sender: FDA-Public Use
  Company Number: AU-BAYER-2018-092596

PATIENT
  Age: 63 Year
  Sex: Male
  Weight: 64.99 kg

DRUGS (2)
  1. NEXAVAR [Suspect]
     Active Substance: SORAFENIB
     Dosage: UNK
     Route: 048
  2. REGORAFENIB. [Suspect]
     Active Substance: REGORAFENIB
     Dosage: DAILY DOSE 80 MG
     Route: 048
     Dates: start: 20180411, end: 20180501

REACTIONS (2)
  - Biliary colic [Recovered/Resolved]
  - Biliary colic [Recovered/Resolved]

NARRATIVE: CASE EVENT DATE: 20180507
